FAERS Safety Report 4448156-9 (Version None)
Quarter: 2004Q3

REPORT INFORMATION
  Report Type: 
  Country: None (occurrence: None)
  Receive Date: 20040813
  Receipt Date: 20040429
  Transmission Date: 20050211
  Serious: Yes (Hospitalization)
  Sender: FDA-Public Use
  Company Number: S04-USA-02683-01

PATIENT
  Age: 87 Year
  Sex: Female

DRUGS (10)
  1. NAMENDA [Suspect]
     Indication: DEMENTIA ALZHEIMER'S TYPE
     Dosage: 5 MG QD PO
     Route: 048
     Dates: start: 20040209, end: 20040215
  2. NAMENDA [Suspect]
     Indication: DEMENTIA ALZHEIMER'S TYPE
     Dosage: 10 MG QD PO
     Route: 048
     Dates: start: 20040216, end: 20040222
  3. NAMENDA [Suspect]
     Indication: DEMENTIA ALZHEIMER'S TYPE
     Dosage: 15 MG QD PO
     Route: 048
     Dates: start: 20040223, end: 20040229
  4. NAMENDA [Suspect]
     Indication: DEMENTIA ALZHEIMER'S TYPE
     Dosage: 20 MG QD PO
     Route: 048
     Dates: start: 20040301
  5. EFFEXOR [Concomitant]
  6. PLAVIX [Concomitant]
  7. ARICEPT [Concomitant]
  8. STOOL SOFTENER [Concomitant]
  9. BENEFIBER [Concomitant]
  10. VIACTIV [Concomitant]

REACTIONS (4)
  - CONTUSION [None]
  - FALL [None]
  - SKIN LACERATION [None]
  - URINARY TRACT INFECTION [None]
